FAERS Safety Report 16106151 (Version 2)
Quarter: 2019Q2

REPORT INFORMATION
  Report Type: Spontaneous
  Country: US (occurrence: US)
  Receive Date: 20190322
  Receipt Date: 20190502
  Transmission Date: 20190711
  Serious: No
  Sender: FDA-Public Use
  Company Number: US-ASTRAZENECA-2019SE32520

PATIENT
  Sex: Female
  Weight: 77.1 kg

DRUGS (4)
  1. SYMBICORT [Suspect]
     Active Substance: BUDESONIDE\FORMOTEROL FUMARATE DIHYDRATE
     Indication: CHRONIC OBSTRUCTIVE PULMONARY DISEASE
     Dosage: 160/4.5 MCG, TWO PUFFS TWICE DAILY
     Route: 055
     Dates: start: 2015
  2. ALBUTEROL NEBULIZER [Concomitant]
     Active Substance: ALBUTEROL
     Indication: WHEEZING
     Dosage: AS REQUIRED
  3. SYMBICORT [Suspect]
     Active Substance: BUDESONIDE\FORMOTEROL FUMARATE DIHYDRATE
     Indication: ASTHMA
     Dosage: 160/4.5 MCG, TWO PUFFS TWICE DAILY
     Route: 055
     Dates: start: 2015
  4. PROAIR HFA [Concomitant]
     Active Substance: ALBUTEROL SULFATE
     Indication: SUPPLEMENTATION THERAPY
     Dosage: AS REQUIRED
     Route: 055

REACTIONS (5)
  - Intentional product misuse [Unknown]
  - Chronic obstructive pulmonary disease [Unknown]
  - Product dose omission [Unknown]
  - Wrong technique in device usage process [Unknown]
  - Device issue [Unknown]
